FAERS Safety Report 20861115 (Version 3)
Quarter: 2022Q2

REPORT INFORMATION
  Report Type: Spontaneous
  Country: TR (occurrence: TR)
  Receive Date: 20220523
  Receipt Date: 20220616
  Transmission Date: 20220720
  Serious: Yes (Hospitalization)
  Sender: FDA-Public Use
  Company Number: TR-LUPIN PHARMACEUTICALS INC.-2022-07322

PATIENT
  Age: 17 Year
  Sex: Male

DRUGS (10)
  1. LORAZEPAM [Suspect]
     Active Substance: LORAZEPAM
     Indication: Substance-induced psychotic disorder
     Dosage: 1 MG
     Route: 060
  2. LORAZEPAM [Suspect]
     Active Substance: LORAZEPAM
     Dosage: 1 MG, TID
     Route: 060
  3. OLANZAPINE [Suspect]
     Active Substance: OLANZAPINE
     Indication: Substance-induced psychotic disorder
     Dosage: 5 MG, QD
     Route: 065
  4. OLANZAPINE [Suspect]
     Active Substance: OLANZAPINE
     Dosage: 15 MG, QD
     Route: 065
  5. MIRTAZAPINE [Suspect]
     Active Substance: MIRTAZAPINE
     Indication: Major depression
     Dosage: 30 MG, QD
     Route: 065
  6. RISPERIDONE [Suspect]
     Active Substance: RISPERIDONE
     Indication: Major depression
     Dosage: 2 MG, QD
     Route: 065
  7. MIDAZOLAM [Suspect]
     Active Substance: MIDAZOLAM
     Indication: Major depression
     Dosage: 15 MILLIGRAM, QD
     Route: 065
  8. BIPERIDEN [Concomitant]
     Active Substance: BIPERIDEN
     Indication: Muscle rigidity
     Dosage: 5 MG
     Route: 030
  9. HALOPERIDOL [Concomitant]
     Active Substance: HALOPERIDOL
     Indication: Substance-induced psychotic disorder
     Dosage: 1 MG, QD
     Route: 065
  10. HUMAN CHORIONIC GONADOTROPIN [Concomitant]
     Active Substance: GONADOTROPHIN, CHORIONIC
     Indication: Steroid withdrawal syndrome
     Dosage: 5000 INTERNATIONAL UNIT
     Route: 065

REACTIONS (3)
  - Sedation complication [Unknown]
  - Drug ineffective [Unknown]
  - Off label use [Unknown]
